FAERS Safety Report 22122199 (Version 1)
Quarter: 2023Q1

REPORT INFORMATION
  Report Type: Report from Study
  Country: US (occurrence: None)
  Receive Date: 20230321
  Receipt Date: 20230321
  Transmission Date: 20230417
  Serious: Yes (Other)
  Sender: FDA-Public Use
  Company Number: US-ROCHE-3314531

PATIENT

DRUGS (3)
  1. TOCILIZUMAB [Suspect]
     Active Substance: TOCILIZUMAB
     Indication: Malignant melanoma
     Dosage: DATE OF LAST (FINAL) DOSE: 30/DEC/2021
     Route: 065
     Dates: start: 20211026
  2. IPILIMUMAB [Suspect]
     Active Substance: IPILIMUMAB
     Indication: Malignant melanoma
     Dosage: DATE OF LAST (FINAL) DOSE: 30/DEC/2021
     Route: 065
     Dates: start: 20211026
  3. NIVOLUMAB [Suspect]
     Active Substance: NIVOLUMAB
     Indication: Malignant melanoma
     Dosage: DATE OF LAST (FINAL) DOSE: 30/DEC/2021
     Route: 065
     Dates: start: 20211026

REACTIONS (5)
  - Hepatitis [Unknown]
  - Alanine aminotransferase increased [Unknown]
  - Aspartate aminotransferase increased [Unknown]
  - Disease progression [Unknown]
  - Arthralgia [Unknown]
